FAERS Safety Report 20245408 (Version 1)
Quarter: 2021Q4

REPORT INFORMATION
  Report Type: Spontaneous
  Country: US (occurrence: US)
  Receive Date: 20211229
  Receipt Date: 20211229
  Transmission Date: 20220304
  Serious: Yes (Other)
  Sender: FDA-Public Use
  Company Number: US-PFIZER INC-202101828726

PATIENT
  Age: 80 Year
  Sex: Male

DRUGS (1)
  1. VYNDAMAX [Suspect]
     Active Substance: TAFAMIDIS
     Dosage: 61 MG

REACTIONS (20)
  - Acute myocardial infarction [Unknown]
  - Ventricular tachycardia [Unknown]
  - Cardiac amyloidosis [Unknown]
  - Myocardial ischaemia [Unknown]
  - Osteoarthritis [Unknown]
  - Rib fracture [Unknown]
  - Chronic obstructive pulmonary disease [Unknown]
  - Constipation [Unknown]
  - Chronic sinusitis [Unknown]
  - Pleural calcification [Unknown]
  - Peripheral venous disease [Unknown]
  - Vestibular disorder [Unknown]
  - Intervertebral disc protrusion [Unknown]
  - Intervertebral disc degeneration [Unknown]
  - Urinary tract infection [Unknown]
  - Anxiety [Unknown]
  - Seasonal allergy [Unknown]
  - Gait disturbance [Unknown]
  - Gout [Unknown]
  - Diastolic dysfunction [Unknown]
